FAERS Safety Report 5745588-3 (Version None)
Quarter: 2008Q2

REPORT INFORMATION
  Report Type: 
  Country: None (occurrence: None)
  Receive Date: 20080521
  Receipt Date: 20080514
  Transmission Date: 20081010
  Serious: Yes (Hospitalization)
  Sender: FDA-Public Use
  Company Number: FR-PFIZER INC-2006049211

PATIENT
  Sex: Female

DRUGS (3)
  1. SU-011,248 [Suspect]
     Indication: METASTATIC RENAL CELL CARCINOMA
     Route: 048
  2. DURAGESIC-100 [Concomitant]
     Route: 048
  3. MORPHINE [Concomitant]
     Route: 048

REACTIONS (2)
  - DIARRHOEA [None]
  - POLLAKIURIA [None]
